FAERS Safety Report 12802081 (Version 1)
Quarter: 2016Q4

REPORT INFORMATION
  Report Type: Spontaneous
  Country: US (occurrence: US)
  Receive Date: 20161003
  Receipt Date: 20161003
  Transmission Date: 20170207
  Serious: No
  Sender: FDA-Public Use
  Company Number: US-JAZZ-2016-US-012160

PATIENT
  Sex: Female

DRUGS (23)
  1. MIMVEY [Concomitant]
     Active Substance: ESTRADIOL\NORETHINDRONE ACETATE
  2. VITAMIN B COMPLEX [Concomitant]
     Active Substance: CYANOCOBALAMIN\DEXPANTHENOL\NIACINAMIDE\PYRIDOXINE HYDROCHLORIDE\RIBOFLAVIN 5^-PHOSPHATE SODIUM\THIAMINE HYDROCHLORIDE\VITAMIN B COMPLEX
  3. CALCIUM [Concomitant]
     Active Substance: CALCIUM
  4. VITEX [Concomitant]
  5. CYMBALTA [Concomitant]
     Active Substance: DULOXETINE HYDROCHLORIDE
  6. MAGNESIUM [Concomitant]
     Active Substance: MAGNESIUM
  7. MULTIVITAMINS [Concomitant]
     Active Substance: VITAMINS
  8. ESTRADIOL. [Concomitant]
     Active Substance: ESTRADIOL
  9. HORMONE [Suspect]
     Active Substance: UNSPECIFIED INGREDIENT
     Indication: PRODUCT USED FOR UNKNOWN INDICATION
  10. ZINC [Concomitant]
     Active Substance: ZINC\ZINC CHLORIDE
  11. BIOTIN [Concomitant]
     Active Substance: BIOTIN
  12. XYREM [Suspect]
     Active Substance: SODIUM OXYBATE
     Dosage: DOSE ADJUSTMENTS
     Route: 048
     Dates: start: 201510, end: 201511
  13. VITAMIN D3 [Concomitant]
     Active Substance: CHOLECALCIFEROL
  14. VITAMIN E [Concomitant]
     Active Substance: .ALPHA.-TOCOPHEROL
  15. MAGNESIUM GLUCONATE [Concomitant]
     Active Substance: MAGNESIUM GLUCONATE
  16. NORETHINDRONE. [Concomitant]
     Active Substance: NORETHINDRONE
  17. XYREM [Suspect]
     Active Substance: SODIUM OXYBATE
     Indication: NARCOLEPSY
     Dosage: 2.25 G, BID
     Route: 048
     Dates: start: 201510, end: 201510
  18. XYREM [Suspect]
     Active Substance: SODIUM OXYBATE
     Dosage: 4.5 G, BID
     Route: 048
     Dates: start: 201511
  19. OMEGA 3-6-9 [Concomitant]
     Active Substance: FISH OIL
  20. ASACOL HD [Concomitant]
     Active Substance: MESALAMINE
  21. METHYLCOBALAMIN. [Concomitant]
     Active Substance: METHYLCOBALAMIN
  22. NUVIGIL [Concomitant]
     Active Substance: ARMODAFINIL
  23. POTASSIUM CL [Concomitant]
     Active Substance: POTASSIUM CHLORIDE

REACTIONS (2)
  - Hyperhidrosis [Not Recovered/Not Resolved]
  - Bruxism [Not Recovered/Not Resolved]
